FAERS Safety Report 20864680 (Version 2)
Quarter: 2022Q3

REPORT INFORMATION
  Report Type: Spontaneous
  Country: US (occurrence: US)
  Receive Date: 20220524
  Receipt Date: 20220716
  Transmission Date: 20221026
  Serious: Yes (Other)
  Sender: FDA-Public Use
  Company Number: US-NOVARTISPH-NVSC2022US116720

PATIENT
  Sex: Female

DRUGS (1)
  1. PILOCARPINE HYDROCHLORIDE [Suspect]
     Active Substance: PILOCARPINE HYDROCHLORIDE
     Indication: Product used for unknown indication
     Dosage: 4 % 15 ML, 4 DROPS EVERY DAY IN RIGHT EYE
     Route: 065

REACTIONS (8)
  - Blindness [Unknown]
  - Glaucoma [Unknown]
  - Eye haemorrhage [Unknown]
  - Anxiety [Unknown]
  - Product packaging quantity issue [Unknown]
  - Intraocular pressure increased [Unknown]
  - Product dose omission issue [Unknown]
  - Wrong technique in product usage process [Unknown]
